FAERS Safety Report 5813717-9 (Version None)
Quarter: 2008Q3

REPORT INFORMATION
  Report Type: 
  Country: None (occurrence: None)
  Receive Date: 20080717
  Receipt Date: 20080710
  Transmission Date: 20090109
  Serious: Yes (Other)
  Sender: FDA-Public Use
  Company Number: ES-ABBOTT-08P-144-0461579-00

PATIENT
  Age: 28 Year
  Sex: Female

DRUGS (4)
  1. HUMIRA [Suspect]
     Indication: UVEITIS
     Route: 058
     Dates: start: 20070101, end: 20080615
  2. HUMIRA [Suspect]
     Indication: ARTHRITIS
  3. HUMAN PAPILLOMA VIRUS VACCINE [Concomitant]
     Indication: PROPHYLAXIS
     Dates: start: 20071101, end: 20071101
  4. HUMAN PAPILLOMA VIRUS VACCINE [Concomitant]
     Indication: CERVIX CARCINOMA
     Dates: start: 20080101, end: 20080101

REACTIONS (5)
  - ARTHRALGIA [None]
  - ASTHENIA [None]
  - MALARIA [None]
  - MYALGIA [None]
  - PYREXIA [None]
